FAERS Safety Report 17330267 (Version 1)
Quarter: 2020Q1

REPORT INFORMATION
  Report Type: Spontaneous
  Country: US (occurrence: US)
  Receive Date: 20200110
  Receipt Date: 20200110
  Transmission Date: 20200409
  Serious: Yes (Hospitalization)
  Sender: FDA-Public Use
  Company Number: None

PATIENT
  Sex: Female

DRUGS (3)
  1. LIPITOR [Concomitant]
     Active Substance: ATORVASTATIN CALCIUM
  2. HUMIRA [Suspect]
     Active Substance: ADALIMUMAB
     Indication: CROHN^S DISEASE
     Dosage: ?          OTHER FREQUENCY:EVERY14DAYS ;?
     Route: 058
     Dates: start: 20191020
  3. CALCIUM [Concomitant]
     Active Substance: CALCIUM

REACTIONS (1)
  - Small intestinal obstruction [None]
